FAERS Safety Report 20939305 (Version 1)
Quarter: 2022Q2

REPORT INFORMATION
  Report Type: Spontaneous
  Country: None (occurrence: US)
  Receive Date: 20220609
  Receipt Date: 20220609
  Transmission Date: 20220721
  Serious: No
  Sender: FDA-Public Use
  Company Number: US-Breckenridge Pharmaceutical, Inc.-2129652

PATIENT
  Age: 26 Year
  Sex: Female
  Weight: 77.273 kg

DRUGS (1)
  1. ASENAPINE [Suspect]
     Active Substance: ASENAPINE
     Indication: Emotional disorder
     Route: 060

REACTIONS (7)
  - Therapeutic product ineffective [Unknown]
  - Screaming [Recovered/Resolved]
  - Emotional distress [Unknown]
  - Abnormal behaviour [Recovered/Resolved]
  - Intentional self-injury [Unknown]
  - Sleep disorder [Recovered/Resolved]
  - Drug ineffective [Unknown]
